FAERS Safety Report 8192392-5 (Version None)
Quarter: 2012Q1

REPORT INFORMATION
  Report Type: 
  Country: None (occurrence: None)
  Receive Date: 20120308
  Receipt Date: 20120301
  Transmission Date: 20120608
  Serious: Yes (Hospitalization)
  Sender: FDA-Public Use
  Company Number: US-BIOGENIDEC-2012BI002258

PATIENT
  Age: 56 Year
  Sex: Male

DRUGS (1)
  1. TYSABRI [Suspect]
     Indication: MULTIPLE SCLEROSIS
     Route: 042
     Dates: start: 20110426

REACTIONS (5)
  - FATIGUE [None]
  - TREMOR [None]
  - MUSCULOSKELETAL STIFFNESS [None]
  - HYPOACUSIS [None]
  - CERVICAL SPINAL STENOSIS [None]
